FAERS Safety Report 10558509 (Version 1)
Quarter: 2014Q4

REPORT INFORMATION
  Report Type: Spontaneous
  Country: BR (occurrence: BR)
  Receive Date: 20141031
  Receipt Date: 20141031
  Transmission Date: 20150529
  Serious: Yes (Other)
  Sender: FDA-Public Use
  Company Number: BR-JNJFOC-20141016064

PATIENT
  Age: 57 Year
  Sex: Female
  Weight: 90 kg

DRUGS (4)
  1. DIOVAN AMLO [Concomitant]
     Active Substance: AMLODIPINE\VALSARTAN
     Indication: BLOOD PRESSURE
     Route: 065
  2. PANTOPRAZOLE [Concomitant]
     Active Substance: PANTOPRAZOLE SODIUM
     Route: 065
  3. SIMPONI [Suspect]
     Active Substance: GOLIMUMAB
     Indication: RHEUMATOID ARTHRITIS
     Route: 058
     Dates: start: 201303
  4. ARAVA [Concomitant]
     Active Substance: LEFLUNOMIDE
     Indication: RHEUMATOID ARTHRITIS
     Route: 065

REACTIONS (5)
  - Diverticulitis [Not Recovered/Not Resolved]
  - Sinusitis [Unknown]
  - Gastrooesophageal reflux disease [Recovered/Resolved]
  - Hypercholesterolaemia [Not Recovered/Not Resolved]
  - Blood triglycerides increased [Not Recovered/Not Resolved]

NARRATIVE: CASE EVENT DATE: 201407
